FAERS Safety Report 5486114-6 (Version None)
Quarter: 2007Q4

REPORT INFORMATION
  Report Type: 
  Country: None (occurrence: None)
  Receive Date: 20071015
  Receipt Date: 20071003
  Transmission Date: 20080405
  Serious: Yes (Other)
  Sender: FDA-Public Use
  Company Number: US-PFIZER INC-2007074285

PATIENT
  Sex: Male
  Weight: 79.4 kg

DRUGS (10)
  1. XANAX [Suspect]
     Indication: PANIC DISORDER
  2. XANAX [Suspect]
     Indication: GENERALISED ANXIETY DISORDER
  3. XANAX [Suspect]
     Indication: BACK PAIN
  4. LYRICA [Suspect]
     Indication: NERVE INJURY
  5. LYRICA [Suspect]
     Indication: PAIN
  6. GABAPENTIN [Suspect]
     Indication: NERVE INJURY
     Dosage: DAILY DOSE:1600MG
     Dates: start: 20060101, end: 20070301
  7. GABAPENTIN [Suspect]
     Indication: PAIN
  8. NEXIUM [Concomitant]
  9. EFFEXOR [Concomitant]
  10. LORTAB [Concomitant]

REACTIONS (7)
  - DRUG SCREEN FALSE POSITIVE [None]
  - HYPOAESTHESIA [None]
  - NERVE INJURY [None]
  - SEDATION [None]
  - SOMNOLENCE [None]
  - THEFT [None]
  - VIOLENCE-RELATED SYMPTOM [None]
